FAERS Safety Report 21875395 (Version 3)
Quarter: 2023Q1

REPORT INFORMATION
  Report Type: Other
  Country: US (occurrence: None)
  Receive Date: 20230118
  Receipt Date: 20230127
  Transmission Date: 20230417
  Serious: Yes (Death, Other)
  Sender: FDA-Public Use
  Company Number: US-MLMSERVICE-20230109-4032596-1

PATIENT
  Age: 16 Year
  Sex: Female

DRUGS (12)
  1. MYCOPHENOLATE MOFETIL [Suspect]
     Active Substance: MYCOPHENOLATE MOFETIL
     Indication: Prophylaxis against transplant rejection
     Route: 065
  2. VALGANCICLOVIR [Suspect]
     Active Substance: VALGANCICLOVIR
     Indication: Product used for unknown indication
     Route: 065
  3. PREDNISONE [Suspect]
     Active Substance: PREDNISONE
     Indication: Prophylaxis against transplant rejection
     Route: 065
  4. TACROLIMUS [Suspect]
     Active Substance: TACROLIMUS
     Indication: Prophylaxis against transplant rejection
     Route: 065
  5. EVEROLIMUS [Suspect]
     Active Substance: EVEROLIMUS
     Indication: Prophylaxis against transplant rejection
     Route: 065
  6. CYTARABINE [Concomitant]
     Active Substance: CYTARABINE
     Indication: Multiple sclerosis
  7. DAUNORUBICIN [Concomitant]
     Active Substance: DAUNORUBICIN
  8. FLUDARABINE [Concomitant]
     Active Substance: FLUDARABINE PHOSPHATE
     Indication: Multiple sclerosis
  9. ETOPOSIDE [Concomitant]
     Active Substance: ETOPOSIDE
     Indication: Multiple sclerosis
  10. DECITABINE [Concomitant]
     Active Substance: DECITABINE
     Indication: Multiple sclerosis
  11. VENETOCLAX [Concomitant]
     Active Substance: VENETOCLAX
     Indication: Multiple sclerosis
  12. SIROLIMUS [Concomitant]
     Active Substance: SIROLIMUS

REACTIONS (3)
  - Soft tissue sarcoma [Fatal]
  - Epstein-Barr virus infection [Fatal]
  - Leukopenia [Unknown]
